FAERS Safety Report 10342197 (Version 1)
Quarter: 2014Q3

REPORT INFORMATION
  Report Type: Spontaneous
  Country: US (occurrence: None)
  Receive Date: 20140724
  Receipt Date: 20140724
  Transmission Date: 20150326
  Serious: Yes (Hospitalization)
  Sender: FDA-Public Use
  Company Number: None

PATIENT
  Age: 61 Year
  Sex: Female
  Weight: 87 kg

DRUGS (9)
  1. GADOPENTETATE-DIMEGLUMINE [Concomitant]
  2. MAGNESIUM SULFATE [Concomitant]
     Active Substance: MAGNESIUM SULFATE
  3. KEPPRA [Concomitant]
     Active Substance: LEVETIRACETAM
  4. PHENYTOIN. [Concomitant]
     Active Substance: PHENYTOIN
  5. TYLENOL [Concomitant]
     Active Substance: ACETAMINOPHEN
  6. INLYTA [Suspect]
     Active Substance: AXITINIB
     Indication: RENAL CANCER
     Route: 048
     Dates: start: 20140417, end: 20140529
  7. LORAZEPAM. [Suspect]
     Active Substance: LORAZEPAM
  8. ZOFRAN [Concomitant]
     Active Substance: ONDANSETRON HYDROCHLORIDE
  9. METOPROLOL [Concomitant]
     Active Substance: METOPROLOL

REACTIONS (1)
  - Posterior reversible encephalopathy syndrome [None]

NARRATIVE: CASE EVENT DATE: 20140429
